FAERS Safety Report 20612660 (Version 1)
Quarter: 2022Q1

REPORT INFORMATION
  Report Type: Spontaneous
  Country: DE (occurrence: DE)
  Receive Date: 20220318
  Receipt Date: 20220318
  Transmission Date: 20220424
  Serious: Yes (Other)
  Sender: FDA-Public Use
  Company Number: DE-NOVARTISPH-NVSC2022DE058933

PATIENT
  Age: 42 Year
  Sex: Female
  Weight: 61 kg

DRUGS (6)
  1. LAMOTRIGINE [Suspect]
     Active Substance: LAMOTRIGINE
     Indication: Epilepsy
     Dosage: 100 MG, 2X PER DAY
     Route: 048
  2. COMIRNATY [Suspect]
     Active Substance: TOZINAMERAN
     Indication: COVID-19
     Dosage: UNK, SINGLE DOSE
     Route: 065
     Dates: start: 20220101, end: 20220101
  3. COMIRNATY [Suspect]
     Active Substance: TOZINAMERAN
     Indication: Prophylaxis
  4. NEUPRO [Suspect]
     Active Substance: ROTIGOTINE
     Indication: Paraesthesia
     Dosage: 2 MG/24 H
     Route: 062
     Dates: start: 202111, end: 202111
  5. NEUPRO [Suspect]
     Active Substance: ROTIGOTINE
     Indication: Restless legs syndrome
     Dosage: 2 MG/24 H
     Route: 062
     Dates: start: 20220114, end: 20220116
  6. LEVETIRACETAM [Suspect]
     Active Substance: LEVETIRACETAM
     Indication: Epilepsy
     Dosage: 500 MG, 2X PER DAY
     Route: 048

REACTIONS (5)
  - Paraesthesia [Unknown]
  - Epilepsy [Unknown]
  - Drug interaction [Unknown]
  - Nausea [Unknown]
  - Drug ineffective [Unknown]

NARRATIVE: CASE EVENT DATE: 20211101
